FAERS Safety Report 4916890-X (Version None)
Quarter: 2006Q1

REPORT INFORMATION
  Report Type: 
  Country: None (occurrence: None)
  Receive Date: 20060113
  Receipt Date: 20051020
  Transmission Date: 20060701
  Serious: No
  Sender: FDA-Public Use
  Company Number: 2005SP002452

PATIENT
  Age: 74 Year
  Sex: Female
  Weight: 68.0396 kg

DRUGS (6)
  1. LUNESTA [Suspect]
     Indication: INSOMNIA
     Dosage: SEE IMAGE
     Route: 048
     Dates: start: 20050810, end: 20050801
  2. LUNESTA [Suspect]
     Indication: INSOMNIA
     Dosage: SEE IMAGE
     Route: 048
     Dates: start: 20050801, end: 20050821
  3. THYROID TAB [Concomitant]
  4. METOPROLOL SUCCINATE [Concomitant]
  5. ZANAFLEX [Concomitant]
  6. DIURETICS [Concomitant]

REACTIONS (3)
  - HEART RATE IRREGULAR [None]
  - MIDDLE INSOMNIA [None]
  - SLEEP DISORDER [None]
